FAERS Safety Report 21750342 (Version 1)
Quarter: 2022Q4

REPORT INFORMATION
  Report Type: Spontaneous
  Country: US (occurrence: US)
  Receive Date: 20221219
  Receipt Date: 20221219
  Transmission Date: 20230113
  Serious: No
  Sender: FDA-Public Use
  Company Number: US-UPSHER-SMITH LABORATORIES, LLC-2022USL00884

PATIENT
  Sex: Male
  Weight: 70.295 kg

DRUGS (2)
  1. KLOR-CON M [Suspect]
     Active Substance: POTASSIUM CHLORIDE
     Indication: Blood potassium decreased
     Dosage: 20 MEQ, 2X/DAY
     Route: 048
  2. UNSPECIFIED INGREDIENT [Concomitant]
     Active Substance: UNSPECIFIED INGREDIENT
     Indication: Blood potassium decreased
     Dosage: 20 MEQ, 2X/DAY
     Route: 048

REACTIONS (3)
  - Foreign body in throat [Recovering/Resolving]
  - Sensation of foreign body [Recovering/Resolving]
  - Product use complaint [Recovering/Resolving]

NARRATIVE: CASE EVENT DATE: 20220101
